FAERS Safety Report 8401444-3 (Version None)
Quarter: 2012Q2

REPORT INFORMATION
  Report Type: 
  Country: None (occurrence: None)
  Receive Date: 20120601
  Receipt Date: 20120530
  Transmission Date: 20120825
  Serious: Yes (Other)
  Sender: FDA-Public Use
  Company Number: CN-PFIZER INC-2012130435

PATIENT
  Sex: Male

DRUGS (2)
  1. CELEBREX [Suspect]
     Indication: APPENDICECTOMY
     Route: 048
  2. CELEBREX [Suspect]
     Indication: BACK PAIN

REACTIONS (2)
  - ASPHYXIA [None]
  - LARYNGEAL OEDEMA [None]
